FAERS Safety Report 18479951 (Version 1)
Quarter: 2020Q4

REPORT INFORMATION
  Report Type: Spontaneous
  Country: SE (occurrence: SE)
  Receive Date: 20201109
  Receipt Date: 20201109
  Transmission Date: 20210114
  Serious: Yes (Other)
  Sender: FDA-Public Use
  Company Number: SE-TEVA-2020-SE-1845406

PATIENT
  Age: 83 Year
  Sex: Male

DRUGS (4)
  1. AMIAS [Concomitant]
     Active Substance: CANDESARTAN CILEXETIL
     Dosage: 4 MG
  2. METOPROLOL TEVA 25 MG DEPOTTABLETT [Suspect]
     Active Substance: METOPROLOL
     Indication: CARDIAC DISORDER
     Dosage: 25 MG
     Route: 048
     Dates: start: 20201005, end: 20201009
  3. TROMBYL [Concomitant]
     Active Substance: ASPIRIN
     Dosage: 75 MG
  4. CRESTOR [Concomitant]
     Active Substance: ROSUVASTATIN CALCIUM
     Dosage: 10 MG

REACTIONS (3)
  - Pain [Unknown]
  - Chest discomfort [Unknown]
  - Product substitution issue [Unknown]

NARRATIVE: CASE EVENT DATE: 20201008
